FAERS Safety Report 5592389-5 (Version None)
Quarter: 2008Q1

REPORT INFORMATION
  Report Type: 
  Country: None (occurrence: None)
  Receive Date: 20080115
  Receipt Date: 20080103
  Transmission Date: 20080703
  Serious: Yes (Other)
  Sender: FDA-Public Use
  Company Number: DE-PFIZER INC-2007089492

PATIENT
  Sex: Female
  Weight: 57 kg

DRUGS (6)
  1. CHANTIX [Suspect]
     Indication: SMOKING CESSATION THERAPY
     Route: 048
  2. LOCOL [Concomitant]
     Route: 048
  3. EZETROL [Concomitant]
     Route: 048
  4. SPIRIVA [Concomitant]
     Route: 055
  5. LANTUS [Concomitant]
  6. NOVORAPID [Concomitant]
     Route: 058

REACTIONS (4)
  - BLOOD GLUCOSE INCREASED [None]
  - HEADACHE [None]
  - INSOMNIA [None]
  - NAUSEA [None]
